FAERS Safety Report 9451495 (Version 2)
Quarter: 2013Q3

REPORT INFORMATION
  Report Type: Spontaneous
  Country: CA (occurrence: CA)
  Receive Date: 20130810
  Receipt Date: 20130916
  Transmission Date: 20140515
  Serious: Yes (Other)
  Sender: FDA-Public Use
  Company Number: CA-AMGEN-CANSP2013054500

PATIENT
  Sex: Female

DRUGS (1)
  1. PROLIA [Suspect]
     Indication: OSTEOPOROSIS POSTMENOPAUSAL
     Dosage: UNK
     Route: 065
     Dates: start: 20120320

REACTIONS (5)
  - Deafness [Recovered/Resolved]
  - Diarrhoea [Unknown]
  - Viral infection [Unknown]
  - Influenza [Recovered/Resolved]
  - Intestinal mass [Unknown]
